FAERS Safety Report 8806621 (Version 1)
Quarter: 2012Q4

REPORT INFORMATION
  Report Type: 
  Country: US (occurrence: US)
  Receive Date: 20120925
  Receipt Date: 20120925
  Transmission Date: 20130627
  Serious: Yes (Other)
  Sender: FDA-Public Use
  Company Number: US-009507513-1209USA007265

PATIENT
  Sex: Male

DRUGS (2)
  1. PEG-INTRON [Suspect]
     Indication: HEPATITIS C
     Dosage: UNK
     Dates: start: 20080729, end: 20080818
  2. REBETOL [Suspect]
     Indication: HEPATITIS C
     Dosage: UNK
     Dates: start: 20080729, end: 20080818

REACTIONS (5)
  - Shoulder arthroplasty [Unknown]
  - Surgery [Unknown]
  - Back pain [Unknown]
  - Decreased appetite [Unknown]
  - Malaise [Unknown]
